FAERS Safety Report 10216781 (Version 2)
Quarter: 2014Q2

REPORT INFORMATION
  Report Type: Other
  Country: CA (occurrence: CA)
  Receive Date: 20140604
  Receipt Date: 20140604
  Transmission Date: 20141212
  Serious: Yes (Death, Hospitalization, Other)
  Sender: FDA-Public Use
  Company Number: CA-GSKPPD-2014GSK002124

PATIENT
  Sex: Female

DRUGS (2)
  1. AVANDIA [Suspect]
     Indication: DIABETES MELLITUS
     Dosage: AVANDIA WAS NOT LISTED AMONG THE PATIENT^S DISCHARGE RECORDS.
     Route: 048
  2. ASPIRIN [Concomitant]

REACTIONS (6)
  - Myocardial infarction [None]
  - Atrial fibrillation [None]
  - Cardiac failure congestive [None]
  - Carotid artery stenosis [None]
  - Atrioventricular block [None]
  - Haemorrhage intracranial [Fatal]
